FAERS Safety Report 4885541-5 (Version None)
Quarter: 2006Q1

REPORT INFORMATION
  Report Type: 
  Country: None (occurrence: None)
  Receive Date: 20060119
  Receipt Date: 20060112
  Transmission Date: 20060701
  Serious: Yes (Other)
  Sender: FDA-Public Use
  Company Number: US-MERCK-0601USA01793

PATIENT
  Age: 79 Year
  Sex: Male
  Weight: 95 kg

DRUGS (9)
  1. PRINIVIL [Suspect]
     Route: 048
     Dates: end: 20051201
  2. PRINIVIL [Suspect]
     Route: 048
     Dates: start: 20051201
  3. METOPROLOL TARTRATE [Concomitant]
     Route: 065
     Dates: start: 20051219
  4. METOPROLOL TARTRATE [Concomitant]
     Route: 065
     Dates: start: 20051101, end: 20051218
  5. ASPIRIN [Concomitant]
     Route: 065
  6. ZOCOR [Concomitant]
     Route: 048
  7. PROSCAR [Concomitant]
     Route: 048
  8. TERAZOSIN HYDROCHLORIDE [Concomitant]
     Route: 065
  9. PLAVIX [Concomitant]
     Route: 065
     Dates: start: 20051001

REACTIONS (6)
  - BLOOD PRESSURE INCREASED [None]
  - DIFFICULTY IN WALKING [None]
  - DYSPNOEA [None]
  - FALL [None]
  - FATIGUE [None]
  - PHARYNGOLARYNGEAL PAIN [None]
